FAERS Safety Report 6038461-7 (Version None)
Quarter: 2009Q1

REPORT INFORMATION
  Report Type: 
  Country: None (occurrence: None)
  Receive Date: 20090115
  Receipt Date: 20090107
  Transmission Date: 20090719
  Serious: Yes (Other)
  Sender: FDA-Public Use
  Company Number: US-KINGPHARMUSA00001-K200900009

PATIENT
  Sex: Female

DRUGS (3)
  1. INTAL [Suspect]
     Indication: ASTHMA
     Dosage: 5 MG, 2 PUFFS, QD
     Dates: start: 19980101, end: 20081001
  2. INTAL [Suspect]
     Dosage: TAPERING DOSE FOR 7 DAYS
     Dates: start: 20081009, end: 20081016
  3. MYDRIATICS AND CYCLOPLEGICS [Concomitant]
     Dosage: UNK GTT, SINGLE
     Dates: start: 20081009, end: 20081009

REACTIONS (3)
  - BLINDNESS [None]
  - INTRAOCULAR PRESSURE INCREASED [None]
  - RETINAL ISCHAEMIA [None]
